FAERS Safety Report 9046891 (Version 1)
Quarter: 2013Q1

REPORT INFORMATION
  Report Type: Spontaneous
  Country: US (occurrence: None)
  Receive Date: 20130129
  Receipt Date: 20130129
  Transmission Date: 20140127
  Serious: Yes (Other)
  Sender: FDA-Public Use
  Company Number: None

PATIENT
  Age: 41 Year
  Sex: Female
  Weight: 64.41 kg

DRUGS (2)
  1. ZYRTEC [Suspect]
     Indication: URTICARIA
     Dosage: 10MG  1X/DAILY  PO?08/25/2006  --  05/15/2012
     Route: 048
     Dates: start: 20060825, end: 20120515
  2. ZYRTEC [Suspect]
     Indication: SEASONAL ALLERGY
     Dosage: 10MG  1X/DAILY  PO?08/25/2006  --  05/15/2012
     Route: 048
     Dates: start: 20060825, end: 20120515

REACTIONS (2)
  - Panic attack [None]
  - Drug withdrawal syndrome [None]
